FAERS Safety Report 7380210-4 (Version None)
Quarter: 2011Q1

REPORT INFORMATION
  Report Type: 
  Country: None (occurrence: None)
  Receive Date: 20110329
  Receipt Date: 20110126
  Transmission Date: 20110831
  Serious: No
  Sender: FDA-Public Use
  Company Number: US-MYLANLABS-2011S1001802

PATIENT
  Age: 56 Year
  Sex: Female

DRUGS (2)
  1. ESTRADIOL [Suspect]
     Dosage: Q WEEK
     Route: 062
  2. LISINOPRIL [Concomitant]
     Route: 048

REACTIONS (1)
  - APPLICATION SITE REACTION [None]
